FAERS Safety Report 9169903 (Version 1)
Quarter: 2013Q1

REPORT INFORMATION
  Report Type: Spontaneous
  Country: US (occurrence: None)
  Receive Date: 20130307
  Receipt Date: 20130307
  Transmission Date: 20140127
  Serious: Yes (Other)
  Sender: FDA-Public Use
  Company Number: USEN-94WUKR

PATIENT
  Age: 11 Year
  Sex: Female

DRUGS (1)
  1. 3M AVAGARD [Suspect]
     Indication: ANTIBIOTIC PROPHYLAXIS
     Route: 061
     Dates: start: 20130202

REACTIONS (2)
  - Burns third degree [None]
  - Burns second degree [None]
